FAERS Safety Report 8861756 (Version 1)
Quarter: 2012Q4

REPORT INFORMATION
  Report Type: Spontaneous
  Country: US (occurrence: None)
  Receive Date: 20121025
  Receipt Date: 20121025
  Transmission Date: 20130627
  Serious: No
  Sender: FDA-Public Use
  Company Number: None

PATIENT
  Age: 71 Year
  Sex: Male
  Weight: 70.4 kg

DRUGS (1)
  1. DIVALPROEX SODIUM [Suspect]
     Indication: BIPOLAR AFFECTIVE DISORDER, MIXED
     Dosage: 2000 MG HS PO
     Route: 048
     Dates: start: 20060504

REACTIONS (7)
  - Dizziness [None]
  - Renal failure acute [None]
  - Neuroleptic malignant syndrome [None]
  - Tremor [None]
  - Pyrexia [None]
  - Mental status changes [None]
  - Toxicity to various agents [None]
